FAERS Safety Report 16849475 (Version 1)
Quarter: 2019Q4

REPORT INFORMATION
  Report Type: Spontaneous
  Country: US (occurrence: US)
  Receive Date: 20190924
  Receipt Date: 20190924
  Transmission Date: 20200122
  Serious: Yes (Hospitalization)
  Sender: FDA-Public Use
  Company Number: None

PATIENT
  Age: 12 Year
  Sex: Female

DRUGS (2)
  1. SINGULAIR [Suspect]
     Active Substance: MONTELUKAST SODIUM
     Indication: MULTIPLE ALLERGIES
     Dates: start: 20151027, end: 20171223
  2. SINGULAIR [Suspect]
     Active Substance: MONTELUKAST SODIUM
     Indication: ASTHMA
     Dates: start: 20151027, end: 20171223

REACTIONS (5)
  - Nightmare [None]
  - Depression [None]
  - Anxiety [None]
  - Obsessive-compulsive disorder [None]
  - Oppositional defiant disorder [None]

NARRATIVE: CASE EVENT DATE: 20180810
